FAERS Safety Report 7491107-3 (Version None)
Quarter: 2011Q2

REPORT INFORMATION
  Report Type: 
  Country: None (occurrence: None)
  Receive Date: 20110519
  Receipt Date: 20110511
  Transmission Date: 20111010
  Serious: Yes (Hospitalization)
  Sender: FDA-Public Use
  Company Number: US-B.I. PHARMACEUTICALS,INC./RIDGEFIELD-2011-BP-06011BP

PATIENT
  Age: 78 Year
  Sex: Female
  Weight: 134.5 kg

DRUGS (6)
  1. PRADAXA [Suspect]
     Indication: ATRIAL FIBRILLATION
     Dosage: 300 MG
     Route: 048
     Dates: end: 20110301
  2. PREVACID [Concomitant]
     Dosage: 30 MG
  3. SYNTHROID [Concomitant]
     Dosage: 100 MCG
  4. HYDROCHLOROTHIAZIDE [Concomitant]
     Dosage: 12.5 MG
  5. HUMULIN N [Concomitant]
  6. TORSEMIDE [Concomitant]
     Dosage: 20 MG

REACTIONS (4)
  - GASTRITIS [None]
  - INTERNATIONAL NORMALISED RATIO ABNORMAL [None]
  - HAEMOGLOBIN DECREASED [None]
  - RECTAL HAEMORRHAGE [None]
